FAERS Safety Report 17182959 (Version 1)
Quarter: 2019Q4

REPORT INFORMATION
  Report Type: Spontaneous
  Country: GB (occurrence: GB)
  Receive Date: 20191220
  Receipt Date: 20191220
  Transmission Date: 20200122
  Serious: Yes (Hospitalization, Disabling)
  Sender: FDA-Public Use
  Company Number: GB-GLAXOSMITHKLINE-GB2019227742

PATIENT
  Age: 17 Year
  Sex: Male
  Weight: 47.6 kg

DRUGS (1)
  1. BELIMUMAB [Suspect]
     Active Substance: BELIMUMAB
     Indication: COMPLEMENT DEFICIENCY DISEASE
     Dosage: MONTHLY
     Route: 042
     Dates: start: 20190509, end: 20190831

REACTIONS (5)
  - Paranoia [Recovering/Resolving]
  - Intrusive thoughts [Recovering/Resolving]
  - Psychotic disorder [Recovering/Resolving]
  - Dysphagia [Recovering/Resolving]
  - Anxiety [Recovering/Resolving]

NARRATIVE: CASE EVENT DATE: 2019
